FAERS Safety Report 25824166 (Version 1)
Quarter: 2025Q3

REPORT INFORMATION
  Report Type: Spontaneous
  Country: US (occurrence: None)
  Receive Date: 20250919
  Receipt Date: 20250919
  Transmission Date: 20251020
  Serious: Yes (Disabling)
  Sender: FDA-CTU
  Company Number: None

PATIENT
  Age: 70 Year
  Sex: Female
  Weight: 66.22 kg

DRUGS (9)
  1. ANASTROZOLE [Suspect]
     Active Substance: ANASTROZOLE
     Indication: Hormone suppression therapy
     Dosage: FREQUENCY : DAILY;?
     Route: 048
     Dates: start: 20240930, end: 20250226
  2. AROMASIN [Suspect]
     Active Substance: EXEMESTANE
  3. LORAZEPAM [Concomitant]
     Active Substance: LORAZEPAM
  4. TYLENOL WITH CODEINE [Concomitant]
     Active Substance: ACETAMINOPHEN\CODEINE PHOSPHATE
  5. PREDNISONE [Concomitant]
     Active Substance: PREDNISONE
  6. VIT - D [Concomitant]
  7. CALCIUM [Concomitant]
     Active Substance: CALCIUM
  8. METAMUCIL [Concomitant]
     Active Substance: PLANTAGO SEED
  9. CENTRUM SILVER VITAMIN [Concomitant]

REACTIONS (7)
  - Diarrhoea [None]
  - Visual impairment [None]
  - Dizziness [None]
  - Bone pain [None]
  - Arthralgia [None]
  - Joint swelling [None]
  - Spinal osteoarthritis [None]

NARRATIVE: CASE EVENT DATE: 20240101
